FAERS Safety Report 10200946 (Version 1)
Quarter: 2014Q2

REPORT INFORMATION
  Report Type: Spontaneous
  Country: PL (occurrence: PL)
  Receive Date: 20140528
  Receipt Date: 20140528
  Transmission Date: 20141212
  Serious: Yes (Congenital Anomaly)
  Sender: FDA-Public Use
  Company Number: PL-VERTEX PHARMACEUTICALS INC-2014-002537

PATIENT
  Age: 4 Month
  Sex: Female
  Weight: 2.82 kg

DRUGS (4)
  1. INCIVO [Suspect]
     Indication: HEPATITIS C
     Dosage: FATHER^S DOSING
     Route: 064
     Dates: start: 20120904, end: 20121128
  2. INCIVO [Suspect]
     Indication: CHRONIC HEPATITIS C
  3. PEGINTERFERON ALFA-2A [Suspect]
     Indication: CHRONIC HEPATITIS C
     Dosage: DOSAGE FORM: UNSPECIFIED, FATHER^S DOSING
     Route: 064
     Dates: start: 20120904
  4. RIBAVIRIN [Suspect]
     Indication: CHRONIC HEPATITIS C
     Dosage: DOSAGE FORM: UNSPECIFIED, FATHER^S DOSING
     Route: 064
     Dates: start: 20120904

REACTIONS (2)
  - Atrial septal defect [Unknown]
  - Foetal exposure during pregnancy [Unknown]
